FAERS Safety Report 9224784 (Version 2)
Quarter: 2013Q2

REPORT INFORMATION
  Report Type: Spontaneous
  Country: US (occurrence: US)
  Receive Date: 20130411
  Receipt Date: 20130502
  Transmission Date: 20140414
  Serious: No
  Sender: FDA-Public Use
  Company Number: US-009507513-1304USA004826

PATIENT
  Sex: Male

DRUGS (2)
  1. NASONEX [Suspect]
     Indication: INCREASED UPPER AIRWAY SECRETION
     Dosage: 2 DF, QAM
     Route: 045
     Dates: start: 20130325
  2. LEVOTHYROXINE SODIUM [Concomitant]
     Dosage: UNK

REACTIONS (5)
  - Therapeutic response decreased [Unknown]
  - Product quality issue [Unknown]
  - Accidental exposure to product [Unknown]
  - Product quality issue [Unknown]
  - No adverse event [Unknown]
